FAERS Safety Report 17239333 (Version 3)
Quarter: 2020Q2

REPORT INFORMATION
  Report Type: Spontaneous
  Country: US (occurrence: US)
  Receive Date: 20200106
  Receipt Date: 20200406
  Transmission Date: 20200713
  Serious: Yes (Hospitalization)
  Sender: FDA-Public Use
  Company Number: US-PFIZER INC-2020003636

PATIENT
  Age: 36 Year
  Sex: Female
  Weight: 57.61 kg

DRUGS (2)
  1. RAPAMUNE [Suspect]
     Active Substance: SIROLIMUS
     Dosage: 0.65 MG, 1X/DAY
     Route: 048
     Dates: start: 201909
  2. RAPAMUNE [Suspect]
     Active Substance: SIROLIMUS
     Indication: ARTERIOVENOUS MALFORMATION
     Dosage: 1.3 ML, 1X/DAY (1.3ML, ORAL SOLUTION TAKEN WITH A SYRINGE, ONCE A DAY)
     Route: 048
     Dates: start: 201910, end: 201911

REACTIONS (3)
  - Off label use [Unknown]
  - Headache [Recovered/Resolved]
  - Product use in unapproved indication [Unknown]

NARRATIVE: CASE EVENT DATE: 201910
